FAERS Safety Report 4831586-0 (Version None)
Quarter: 2005Q4

REPORT INFORMATION
  Report Type: 
  Country: None (occurrence: None)
  Receive Date: 20051118
  Receipt Date: 20050930
  Transmission Date: 20060501
  Serious: Yes (Hospitalization, Other)
  Sender: FDA-Public Use
  Company Number: US-MERCK-0510USA00724

PATIENT
  Age: 67 Year
  Sex: Female
  Weight: 68 kg

DRUGS (11)
  1. VIOXX [Suspect]
     Indication: ARTHRITIS
     Route: 048
     Dates: start: 20000105, end: 20010701
  2. BIAXIN XL [Concomitant]
     Route: 065
  3. CEFTIN [Concomitant]
     Route: 065
  4. CEPHALEXIN [Concomitant]
     Route: 065
  5. EVISTA [Concomitant]
     Route: 065
  6. FOSAMAX [Concomitant]
     Route: 048
  7. ACETAMINOPHEN AND HYDROCODONE BITARTRATE [Concomitant]
     Route: 065
  8. ORGANIDIN NR [Concomitant]
     Route: 065
  9. PLAVIX [Concomitant]
     Route: 065
  10. SEMPREX-D [Concomitant]
     Route: 065
  11. TRAZODONE HYDROCHLORIDE [Concomitant]
     Route: 065

REACTIONS (3)
  - CEREBROVASCULAR ACCIDENT [None]
  - CHEST PAIN [None]
  - ISCHAEMIC STROKE [None]
